FAERS Safety Report 16323801 (Version 1)
Quarter: 2019Q2

REPORT INFORMATION
  Report Type: Report from Study
  Country: DE (occurrence: DE)
  Receive Date: 20190517
  Receipt Date: 20190517
  Transmission Date: 20190711
  Serious: Yes (Life-Threatening, Hospitalization, Other)
  Sender: FDA-Public Use
  Company Number: PHHY2019DE107952

PATIENT
  Sex: Male

DRUGS (9)
  1. SERETIDE [Concomitant]
     Active Substance: FLUTICASONE PROPIONATE\SALMETEROL XINAFOATE
     Indication: PRODUCT USED FOR UNKNOWN INDICATION
     Dosage: UNK UNK, BID
     Route: 065
  2. PREDNISOLONE. [Concomitant]
     Active Substance: PREDNISOLONE
     Indication: PRODUCT USED FOR UNKNOWN INDICATION
     Dosage: 25 MG, QD (1-0-0) ( TO REDUCE DURING FURTHER COURSE)
     Route: 065
  3. COSENTYX [Suspect]
     Active Substance: SECUKINUMAB
     Indication: PSORIASIS
     Dosage: 300 MG, UNK
     Route: 058
     Dates: start: 20170111, end: 201901
  4. BIFON [Concomitant]
     Indication: PERIPHERAL ARTERIAL OCCLUSIVE DISEASE
  5. PANTOPRAZOLE [Concomitant]
     Active Substance: PANTOPRAZOLE
     Indication: PRODUCT USED FOR UNKNOWN INDICATION
     Dosage: 20 MG, QD (1-0-0)
     Route: 065
  6. CANDESARTAN. [Concomitant]
     Active Substance: CANDESARTAN
     Indication: PRODUCT USED FOR UNKNOWN INDICATION
     Dosage: 8 MG, BID (1-0-1)
     Route: 065
  7. ATROVENT [Concomitant]
     Active Substance: IPRATROPIUM BROMIDE
     Indication: PRODUCT USED FOR UNKNOWN INDICATION
     Dosage: UNK UNK, TID
     Route: 065
  8. PRAVASTATIN. [Concomitant]
     Active Substance: PRAVASTATIN
     Indication: PRODUCT USED FOR UNKNOWN INDICATION
     Dosage: 20 MG, QD (0-0-1)
     Route: 065
  9. DIGIMERCK [Concomitant]
     Active Substance: DIGITOXIN
     Indication: PRODUCT USED FOR UNKNOWN INDICATION
     Dosage: 0.07 OT, QD (1-0-0) (NOT ON WEEKENDS)
     Route: 065

REACTIONS (21)
  - Dyspnoea [Unknown]
  - Tricuspid valve incompetence [Unknown]
  - Gait disturbance [Unknown]
  - Atrial fibrillation [Unknown]
  - Epistaxis [Unknown]
  - Cardiac failure chronic [Recovered/Resolved]
  - Oedema peripheral [Unknown]
  - General physical health deterioration [Unknown]
  - Pain in extremity [Unknown]
  - Peripheral artery stenosis [Unknown]
  - Peripheral artery occlusion [Unknown]
  - Asthenia [Unknown]
  - Inguinal hernia [Unknown]
  - Nausea [Unknown]
  - Obesity [Unknown]
  - Chronic obstructive pulmonary disease [Recovered/Resolved]
  - Gastroenteritis [Unknown]
  - Osteoarthritis [Unknown]
  - Mitral valve incompetence [Unknown]
  - Aortic thrombosis [Unknown]
  - Weight decreased [Unknown]

NARRATIVE: CASE EVENT DATE: 20190128
